FAERS Safety Report 15563390 (Version 1)
Quarter: 2018Q4

REPORT INFORMATION
  Report Type: Report from Study
  Country: US (occurrence: US)
  Receive Date: 20181029
  Receipt Date: 20181029
  Transmission Date: 20190205
  Serious: Yes (Hospitalization)
  Sender: FDA-Public Use
  Company Number: US-ACTELION-A-NJ2018-180617

PATIENT
  Age: 27 Year
  Sex: Female

DRUGS (18)
  1. LORATADINE. [Concomitant]
     Active Substance: LORATADINE
  2. MAPAP [Concomitant]
     Active Substance: ACETAMINOPHEN
  3. IBUPROFEN. [Concomitant]
     Active Substance: IBUPROFEN
  4. AMOXICILINA + CLAVUL POTASSIO [Concomitant]
  5. OPSUMIT [Suspect]
     Active Substance: MACITENTAN
     Indication: PULMONARY ARTERIAL HYPERTENSION
     Dosage: 10 MG, QD
     Route: 048
     Dates: start: 20180821
  6. SILDENAFIL. [Concomitant]
     Active Substance: SILDENAFIL
  7. FAMOTIDINE. [Concomitant]
     Active Substance: FAMOTIDINE
  8. AMOXICILLIN. [Concomitant]
     Active Substance: AMOXICILLIN
  9. WARFARIN [Concomitant]
     Active Substance: WARFARIN
  10. SIMVASTATIN. [Concomitant]
     Active Substance: SIMVASTATIN
  11. ASPIRIN. [Concomitant]
     Active Substance: ASPIRIN
  12. CEPHALEXIN. [Concomitant]
     Active Substance: CEPHALEXIN
  13. TRAMADOL. [Concomitant]
     Active Substance: TRAMADOL
  14. ONDANSETRON [Concomitant]
     Active Substance: ONDANSETRON
  15. PENICILLIN V POTASSIUM. [Concomitant]
     Active Substance: PENICILLIN V POTASSIUM
  16. HYDROCODONE BITARTRATE AND ACETAMINOPHEN [Concomitant]
     Active Substance: ACETAMINOPHEN\HYDROCODONE BITARTRATE
  17. MECLIZINE [Concomitant]
     Active Substance: MECLIZINE HYDROCHLORIDE
  18. NITROFURANTIN [Concomitant]
     Active Substance: NITROFURANTOIN

REACTIONS (3)
  - Vomiting [Unknown]
  - Malaise [Unknown]
  - Hospitalisation [Unknown]

NARRATIVE: CASE EVENT DATE: 201810
